FAERS Safety Report 8397515-0 (Version None)
Quarter: 2012Q2

REPORT INFORMATION
  Report Type: 
  Country: None (occurrence: None)
  Receive Date: 20120531
  Receipt Date: 20120529
  Transmission Date: 20120825
  Serious: Yes (Hospitalization, Other)
  Sender: FDA-Public Use
  Company Number: US-BAYER-2012-014210

PATIENT
  Age: 44 Year
  Sex: Female

DRUGS (2)
  1. MIRENA [Suspect]
     Indication: CONTRACEPTION
  2. MIRENA [Suspect]
     Indication: MENORRHAGIA
     Dosage: 20 MCG/24HR, CONT
     Route: 015
     Dates: start: 20060117, end: 20120430

REACTIONS (7)
  - GENITAL HAEMORRHAGE [None]
  - PELVIC INFLAMMATORY DISEASE [None]
  - DEVICE DISLOCATION [None]
  - UTERINE LEIOMYOMA [None]
  - PELVIC PAIN [None]
  - AMENORRHOEA [None]
  - ABDOMINAL PAIN [None]
